FAERS Safety Report 24590398 (Version 1)
Quarter: 2024Q4

REPORT INFORMATION
  Report Type: Spontaneous
  Country: US (occurrence: None)
  Receive Date: 20241107
  Receipt Date: 20241107
  Transmission Date: 20250115
  Serious: Yes (Other)
  Sender: Public
  Company Number: None

PATIENT
  Age: 51 Year
  Sex: Female
  Weight: 84.15 kg

DRUGS (12)
  1. TALTZ [Suspect]
     Active Substance: IXEKIZUMAB
     Indication: Psoriatic arthropathy
     Dosage: OTHER QUANTITY : 1 INJECTION(S);?OTHER FREQUENCY : 2 LOADING THEN 1;?
     Route: 030
     Dates: start: 20240822, end: 20240927
  2. CELEBREX [Concomitant]
     Active Substance: CELECOXIB
  3. ADDERALL [Concomitant]
  4. COENZYME Q10 [Concomitant]
     Active Substance: DIETARY SUPPLEMENT\UBIDECARENONE
  5. OMEGA 3 [Concomitant]
     Active Substance: CAPSAICIN
  6. VIT D [Concomitant]
  7. VITAMIN K [Concomitant]
     Active Substance: PHYTONADIONE
  8. HERBALS\WITHANIA SOMNIFERA ROOT [Concomitant]
     Active Substance: HERBALS\WITHANIA SOMNIFERA ROOT
  9. VITAMIN B COMPLEX [Concomitant]
     Active Substance: CYANOCOBALAMIN\DEXPANTHENOL\NIACINAMIDE\PYRIDOXINE HYDROCHLORIDE\RIBOFLAVIN 5^-PHOSPHATE SODIUM\THIA
  10. LLysene [Concomitant]
  11. collegen [Concomitant]
  12. FLAXSEED [Concomitant]
     Active Substance: FLAX SEED

REACTIONS (8)
  - Pruritus [None]
  - Tachyphrenia [None]
  - Arthralgia [None]
  - Pyrexia [None]
  - Fatigue [None]
  - Back pain [None]
  - Flank pain [None]
  - Hypersensitivity [None]

NARRATIVE: CASE EVENT DATE: 20240927
